FAERS Safety Report 7180706-4 (Version None)
Quarter: 2010Q4

REPORT INFORMATION
  Report Type: 
  Country: None (occurrence: None)
  Receive Date: 20101221
  Receipt Date: 20101211
  Transmission Date: 20110411
  Serious: Yes (Death)
  Sender: FDA-Public Use
  Company Number: PH-BAXTER-2010BH029915

PATIENT
  Age: 44 Year
  Sex: Female

DRUGS (2)
  1. DIANEAL [Suspect]
     Indication: PERITONEAL DIALYSIS
     Route: 033
     Dates: start: 20091222, end: 20101210
  2. DIANEAL [Suspect]
     Route: 033
     Dates: start: 20091222, end: 20101210

REACTIONS (1)
  - CARDIAC ARREST [None]
